FAERS Safety Report 16968034 (Version 2)
Quarter: 2019Q4

REPORT INFORMATION
  Report Type: Spontaneous
  Country: FR (occurrence: FR)
  Receive Date: 20191028
  Receipt Date: 20191112
  Transmission Date: 20200122
  Serious: Yes (Other)
  Sender: FDA-Public Use
  Company Number: FR-GALDERMA-FR19065534

PATIENT
  Age: 24 Year
  Sex: Female

DRUGS (3)
  1. UNSPECIFIED CORTICOSTEROIDS [Concomitant]
     Active Substance: CORTICOSTEROID NOS
     Indication: PRENATAL CARE
     Route: 065
  2. METRONIDAZOLE. [Suspect]
     Active Substance: METRONIDAZOLE
     Indication: CLOSTRIDIUM DIFFICILE INFECTION
     Route: 065
  3. AMOXICILLIN. [Concomitant]
     Active Substance: AMOXICILLIN
     Indication: PREMATURE RUPTURE OF MEMBRANES
     Route: 065

REACTIONS (3)
  - Intentional product use issue [Recovered/Resolved]
  - Clostridium difficile infection [Unknown]
  - Exposure during pregnancy [Recovered/Resolved]
